FAERS Safety Report 5107602-8 (Version None)
Quarter: 2006Q3

REPORT INFORMATION
  Report Type: 
  Country: None (occurrence: None)
  Receive Date: 20060913
  Receipt Date: 20060913
  Transmission Date: 20061208
  Serious: Yes (Hospitalization)
  Sender: FDA-Public Use
  Company Number: None

PATIENT
  Sex: Female
  Weight: 81.3 kg

DRUGS (4)
  1. CISPLATIN [Suspect]
     Dosage: 93 MG
  2. DOXORUBICIN HYDROCHLORIDE [Suspect]
     Dosage: 83 MG
  3. G-CSF (FILGRASTIM, AMGEN) [Suspect]
     Dosage: 6 MCG
  4. TAXOL [Suspect]
     Dosage: 296 MG

REACTIONS (4)
  - NAUSEA [None]
  - NEUTROPHIL COUNT DECREASED [None]
  - PYREXIA [None]
  - VOMITING [None]
